FAERS Safety Report 7637023-5 (Version None)
Quarter: 2011Q3

REPORT INFORMATION
  Report Type: 
  Country: None (occurrence: None)
  Receive Date: 20110726
  Receipt Date: 20110722
  Transmission Date: 20111222
  Serious: Yes (Life-Threatening)
  Sender: FDA-Public Use
  Company Number: FR-PFIZER INC-2011166499

PATIENT
  Age: 72 Year
  Sex: Female

DRUGS (4)
  1. EFFEXOR XR [Suspect]
     Dosage: 75 MG, 1X/DAY
     Route: 048
  2. PREDNISONE [Suspect]
     Dosage: UNK
     Route: 048
     Dates: start: 20110617
  3. INNOHEP [Suspect]
     Dosage: 1 DF, 1X/DAY
     Route: 058
     Dates: start: 20110623, end: 20110701
  4. ASPIRIN [Suspect]
     Dosage: 100 MG, 1X/DAY
     Route: 048
     Dates: start: 20110623, end: 20110701

REACTIONS (3)
  - ABDOMINAL WALL HAEMATOMA [None]
  - SKIN NECROSIS [None]
  - ANAEMIA [None]
